FAERS Safety Report 5171680-0 (Version None)
Quarter: 2006Q4

REPORT INFORMATION
  Report Type: 
  Country: None (occurrence: None)
  Receive Date: 20061205
  Receipt Date: 20061121
  Transmission Date: 20070319
  Serious: Yes (Other)
  Sender: FDA-Public Use
  Company Number: 2006144697

PATIENT
  Age: 42 Year
  Sex: Male
  Weight: 83.9154 kg

DRUGS (11)
  1. XANAX [Suspect]
     Indication: ANXIETY
     Dosage: 6 MG (2 MG, 3 IN 1 D)
     Dates: start: 19980101
  2. XANAX [Suspect]
     Indication: PANIC ATTACK
     Dosage: 6 MG (2 MG, 3 IN 1 D)
     Dates: start: 19980101
  3. CHANTIX [Suspect]
     Indication: SMOKING CESSATION THERAPY
     Dosage: 2 MG (1 MG, 2 IN 1 D)
     Dates: start: 20060901
  4. OXYCONTIN [Concomitant]
  5. ROXICODONE [Concomitant]
  6. CYMBALTA [Concomitant]
  7. SOMA [Concomitant]
  8. ATENOLOL [Concomitant]
  9. AMBIEN [Concomitant]
  10. PREDNISONE TAB [Concomitant]
  11. LIDODERM [Concomitant]

REACTIONS (4)
  - DRUG INEFFECTIVE [None]
  - HYPERSOMNIA [None]
  - MEMORY IMPAIRMENT [None]
  - ROAD TRAFFIC ACCIDENT [None]
